FAERS Safety Report 23483038 (Version 1)
Quarter: 2024Q1

REPORT INFORMATION
  Report Type: Spontaneous
  Country: US (occurrence: US)
  Receive Date: 20240205
  Receipt Date: 20240205
  Transmission Date: 20240410
  Serious: No
  Sender: FDA-Public Use
  Company Number: US-PFIZER INC-202300296700

PATIENT
  Age: 28 Year
  Sex: Male

DRUGS (1)
  1. EUCRISA [Suspect]
     Active Substance: CRISABOROLE
     Indication: Eczema
     Dosage: 1.0 APPLICATION, OD, 30 DAYS, 60 GRAMS
     Route: 061

REACTIONS (4)
  - Insomnia [Unknown]
  - Pruritus [Unknown]
  - Condition aggravated [Unknown]
  - Product prescribing error [Unknown]
